FAERS Safety Report 15763669 (Version 5)
Quarter: 2021Q1

REPORT INFORMATION
  Report Type: Other
  Country: US (occurrence: US)
  Receive Date: 20181227
  Receipt Date: 20210118
  Transmission Date: 20210419
  Serious: Yes (Other)
  Sender: FDA-Public Use
  Company Number: US-ROCHE-2226804

PATIENT
  Age: 51 Year
  Sex: Female
  Weight: 57.66 kg

DRUGS (18)
  1. OCREVUS [Suspect]
     Active Substance: OCRELIZUMAB
     Route: 065
     Dates: start: 201907
  2. OCREVUS [Suspect]
     Active Substance: OCRELIZUMAB
     Route: 065
     Dates: start: 201806, end: 201812
  3. OCREVUS [Suspect]
     Active Substance: OCRELIZUMAB
     Dosage: DATE OF TREATMENT: 28/JUN/2018, 08/JUL/2019, 17/JAN/2020, 15/JUL/2020
     Route: 065
     Dates: start: 20200717
  4. OCREVUS [Suspect]
     Active Substance: OCRELIZUMAB
     Indication: RELAPSING-REMITTING MULTIPLE SCLEROSIS
     Route: 065
     Dates: start: 20180614, end: 20180628
  5. CLONIDINE. [Concomitant]
     Active Substance: CLONIDINE
  6. VITAMIN B12 [Concomitant]
     Active Substance: CYANOCOBALAMIN
  7. OCREVUS [Suspect]
     Active Substance: OCRELIZUMAB
     Route: 042
  8. GABAPENTIN. [Concomitant]
     Active Substance: GABAPENTIN
  9. AMPYRA [Concomitant]
     Active Substance: DALFAMPRIDINE
  10. MONTELUKAST [Concomitant]
     Active Substance: MONTELUKAST SODIUM
  11. TIZANIDINE. [Concomitant]
     Active Substance: TIZANIDINE
  12. VITAMIN C [Concomitant]
     Active Substance: ASCORBIC ACID
  13. OCREVUS [Suspect]
     Active Substance: OCRELIZUMAB
     Route: 065
     Dates: end: 201807
  14. BIOTIN [Concomitant]
     Active Substance: BIOTIN
  15. TIZANIDINE. [Concomitant]
     Active Substance: TIZANIDINE
  16. PANTOPRAZOLE [Concomitant]
     Active Substance: PANTOPRAZOLE
  17. OMEGA [Concomitant]
  18. COPAXONE [Concomitant]
     Active Substance: GLATIRAMER ACETATE
     Dates: start: 201812, end: 201906

REACTIONS (1)
  - Breast cancer [Not Recovered/Not Resolved]

NARRATIVE: CASE EVENT DATE: 20181130
